FAERS Safety Report 14015642 (Version 2)
Quarter: 2017Q4

REPORT INFORMATION
  Report Type: Spontaneous
  Country: FR (occurrence: FR)
  Receive Date: 20170927
  Receipt Date: 20171006
  Transmission Date: 20180321
  Serious: Yes (Other)
  Sender: FDA-Public Use
  Company Number: FR-TEVA-808974ROM

PATIENT
  Age: 77 Year
  Sex: Female

DRUGS (2)
  1. AZATHIOPRINE. [Suspect]
     Active Substance: AZATHIOPRINE
     Indication: MUSCULAR WEAKNESS
     Dosage: FOR 7 YEARS
     Route: 065
  2. METHOTREXATE. [Suspect]
     Active Substance: METHOTREXATE
     Indication: MUSCULAR WEAKNESS
     Route: 065

REACTIONS (2)
  - Squamous cell carcinoma [Recovered/Resolved]
  - Gastrointestinal lymphoma [Recovered/Resolved]
